FAERS Safety Report 7332740-9 (Version None)
Quarter: 2011Q1

REPORT INFORMATION
  Report Type: 
  Country: None (occurrence: None)
  Receive Date: 20110304
  Receipt Date: 20100716
  Transmission Date: 20110831
  Serious: No
  Sender: FDA-Public Use
  Company Number: US-TYCO HEALTHCARE/MALLINCKRODT-T201001437

PATIENT
  Sex: Female
  Weight: 82.54 kg

DRUGS (7)
  1. FLEXERIL [Concomitant]
     Indication: MUSCLE RELAXANT THERAPY
     Dosage: 10 MG, TID
     Route: 048
  2. TEMAZEPAM [Suspect]
     Indication: INSOMNIA
     Dosage: UNK
     Route: 048
     Dates: start: 20080101, end: 20100101
  3. OTC SLEEP AIDS [Concomitant]
     Indication: INSOMNIA
     Dosage: UNK
     Route: 048
  4. REQUIP [Concomitant]
     Indication: RESTLESS LEGS SYNDROME
     Dosage: 2.5 MG QHS
     Route: 048
  5. LYRICA [Concomitant]
     Indication: FIBROMYALGIA
     Dosage: 75 MG, BID
     Route: 048
  6. MOM [Concomitant]
     Indication: CONSTIPATION
     Dosage: UNK
  7. LORTAB [Concomitant]
     Indication: PAIN
     Dosage: 4-5 PER DAY
     Route: 048
     Dates: start: 20080101

REACTIONS (2)
  - DRUG EFFECT DECREASED [None]
  - MIDDLE INSOMNIA [None]
